FAERS Safety Report 6223443-2 (Version None)
Quarter: 2009Q2

REPORT INFORMATION
  Report Type: 
  Country: None (occurrence: None)
  Receive Date: 20090609
  Receipt Date: 20090602
  Transmission Date: 20091009
  Serious: Yes (Other)
  Sender: FDA-Public Use
  Company Number: 2009AL003649

PATIENT
  Age: 6 Year
  Sex: Male

DRUGS (1)
  1. CETIRIZINE HCL [Suspect]
     Indication: RHINITIS ALLERGIC
     Dosage: 5 MG;QD

REACTIONS (3)
  - DYSPHAGIA [None]
  - DYSTONIA [None]
  - JAW DISORDER [None]
